FAERS Safety Report 4396613-6 (Version None)
Quarter: 2004Q3

REPORT INFORMATION
  Report Type: 
  Country: None (occurrence: None)
  Receive Date: 20040708
  Receipt Date: 20040624
  Transmission Date: 20050211
  Serious: No
  Sender: FDA-Public Use
  Company Number: 04P-167-0264813-00

PATIENT
  Age: 30 Year
  Sex: Female

DRUGS (2)
  1. DIVALPROEX SODIUM [Suspect]
     Indication: BIPOLAR DISORDER
     Dosage: 250 MG, 4 IN 1 D, PER ORAL
     Route: 048
     Dates: start: 20040315, end: 20040422
  2. OLANZAPINE [Suspect]
     Indication: BIPOLAR DISORDER
     Dosage: 1 IN 1 PER ORAL
     Route: 048
     Dates: start: 20000401

REACTIONS (7)
  - ABDOMINAL DISTENSION [None]
  - BREAST OEDEMA [None]
  - DIARRHOEA [None]
  - DIFFICULTY IN WALKING [None]
  - DRUG INTERACTION [None]
  - FLUID RETENTION [None]
  - OEDEMA PERIPHERAL [None]
